FAERS Safety Report 4264745-9 (Version None)
Quarter: 2004Q1

REPORT INFORMATION
  Report Type: 
  Country: None (occurrence: None)
  Receive Date: 20040102
  Receipt Date: 20031221
  Transmission Date: 20041129
  Serious: Yes (Disabling, Other)
  Sender: FDA-Public Use
  Company Number: 2003126148

PATIENT
  Sex: Female
  Weight: 68.0396 kg

DRUGS (4)
  1. NEURONTIN [Suspect]
     Indication: ANGER
     Dosage: 3600 MG (TID)
     Dates: start: 20000101
  2. DIAZEPAM [Concomitant]
  3. ALPRAZOLAM [Concomitant]
  4. VALPROATE SODIUM [Concomitant]

REACTIONS (17)
  - AGGRESSION [None]
  - ANGER [None]
  - CONDITION AGGRAVATED [None]
  - DIARRHOEA [None]
  - DRUG WITHDRAWAL SYNDROME [None]
  - FEELING ABNORMAL [None]
  - HALLUCINATION [None]
  - HEART RATE ABNORMAL [None]
  - HOMICIDAL IDEATION [None]
  - HOSTILITY [None]
  - IRRITABLE BOWEL SYNDROME [None]
  - MUSCLE SPASMS [None]
  - NAUSEA [None]
  - PARAESTHESIA [None]
  - PHYSICAL ASSAULT [None]
  - SUICIDAL IDEATION [None]
  - VOMITING [None]
